FAERS Safety Report 6972295-1 (Version None)
Quarter: 2010Q3

REPORT INFORMATION
  Report Type: 
  Country: None (occurrence: None)
  Receive Date: 20100909
  Receipt Date: 20100825
  Transmission Date: 20110219
  Serious: Yes (Other)
  Sender: FDA-Public Use
  Company Number: PHHY2010US55161

PATIENT
  Sex: Male

DRUGS (3)
  1. EXJADE [Suspect]
     Dosage: UNK
     Dates: start: 20080101
  2. EXJADE [Suspect]
     Dosage: UNK
     Dates: start: 20090101
  3. EXJADE [Suspect]
     Dosage: 1000 MG, QOD
     Route: 048

REACTIONS (5)
  - BONE MARROW FAILURE [None]
  - DIARRHOEA [None]
  - EPSTEIN-BARR VIRUS INFECTION [None]
  - MUSCLE SPASMS [None]
  - STEM CELL TRANSPLANT [None]
